FAERS Safety Report 9690665 (Version 1)
Quarter: 2013Q4

REPORT INFORMATION
  Report Type: Spontaneous
  Country: US (occurrence: None)
  Receive Date: 20131114
  Receipt Date: 20131114
  Transmission Date: 20140711
  Serious: Yes (Disabling, Other)
  Sender: FDA-Public Use
  Company Number: None

PATIENT
  Age: 41 Year
  Sex: Male
  Weight: 88.45 kg

DRUGS (1)
  1. FINASTERIDE [Suspect]
     Indication: ALOPECIA
     Route: 048
     Dates: start: 20030903, end: 20130903

REACTIONS (6)
  - Loss of libido [None]
  - Erectile dysfunction [None]
  - Depression [None]
  - Insomnia [None]
  - Anxiety [None]
  - Amnesia [None]
